FAERS Safety Report 17614569 (Version 1)
Quarter: 2020Q1

REPORT INFORMATION
  Report Type: Spontaneous
  Country: US (occurrence: US)
  Receive Date: 20200331
  Receipt Date: 20200331
  Transmission Date: 20200409
  Serious: Yes (Hospitalization)
  Sender: FDA-Public Use
  Company Number: None

PATIENT
  Age: 57 Year
  Sex: Male

DRUGS (1)
  1. CAPECITABINE 500MG TAB [Suspect]
     Active Substance: CAPECITABINE
     Indication: COLON CANCER
     Dosage: ?          OTHER DOSE:3 TABS-4 TABS;OTHER FREQUENCY:QAM - QPM;OTHER ROUTE:PO 2WKS ON - 1 WK OFF?
     Dates: start: 20200117

REACTIONS (2)
  - Ketoacidosis [None]
  - Neurosis [None]

NARRATIVE: CASE EVENT DATE: 20200331
